FAERS Safety Report 16609133 (Version 2)
Quarter: 2019Q3

REPORT INFORMATION
  Report Type: Report from Study
  Country: US (occurrence: US)
  Receive Date: 20190722
  Receipt Date: 20190730
  Transmission Date: 20191004
  Serious: Yes (Other)
  Sender: FDA-Public Use
  Company Number: US-ROCHE-2358552

PATIENT
  Sex: Female
  Weight: 109.87 kg

DRUGS (2)
  1. XOLAIR [Suspect]
     Active Substance: OMALIZUMAB
     Indication: CHRONIC SPONTANEOUS URTICARIA
     Route: 058
  2. XOLAIR [Suspect]
     Active Substance: OMALIZUMAB
     Indication: CONJUNCTIVITIS

REACTIONS (4)
  - Eye pruritus [Unknown]
  - Erythema [Unknown]
  - Ocular hyperaemia [Unknown]
  - Eye swelling [Unknown]
